FAERS Safety Report 21509607 (Version 1)
Quarter: 2022Q4

REPORT INFORMATION
  Report Type: Spontaneous
  Country: US (occurrence: None)
  Receive Date: 20221026
  Receipt Date: 20221026
  Transmission Date: 20230113
  Serious: No
  Sender: FDA-Public Use
  Company Number: None

PATIENT
  Sex: Female

DRUGS (6)
  1. VIGABATRIN [Suspect]
     Active Substance: VIGABATRIN
     Indication: Epilepsy
     Dosage: FREQUENCY : TWICE A DAY;?OTHER ROUTE : GASTROSTOMY TUBE;?
     Route: 050
  2. IBUPROFEN [Concomitant]
     Active Substance: IBUPROFEN
  3. KEPPRA [Concomitant]
     Active Substance: LEVETIRACETAM
  4. BANZEL [Concomitant]
     Active Substance: RUFINAMIDE
  5. CLONAZEPAM [Concomitant]
     Active Substance: CLONAZEPAM
  6. SINGULAIR [Concomitant]
     Active Substance: MONTELUKAST SODIUM

REACTIONS (2)
  - Generalised tonic-clonic seizure [None]
  - Treatment noncompliance [None]
